FAERS Safety Report 17484138 (Version 1)
Quarter: 2020Q3

REPORT INFORMATION
  Report Type: Spontaneous
  Country: CN (occurrence: CN)
  Receive Date: 20200302
  Receipt Date: 20200302
  Transmission Date: 20201105
  Serious: Yes (Hospitalization, Other)
  Sender: FDA-Public Use
  Company Number: CN-ASTELLAS-2020US007851

PATIENT
  Age: 29 Year
  Sex: Male

DRUGS (15)
  1. METHYLPREDNISOLONE SODIUM SUCCINATE. [Concomitant]
     Active Substance: METHYLPREDNISOLONE SODIUM SUCCINATE
     Dosage: UNK UNK, ONCE DAILY (SEQUENTIALLY METHYLPREDNISOLONE TABLETS)
     Route: 042
     Dates: start: 2019, end: 2019
  2. TACROLIMUS. [Suspect]
     Active Substance: TACROLIMUS
     Indication: RENAL TRANSPLANT
     Route: 048
     Dates: start: 2019, end: 20190218
  3. MYCOPHENOLATE MOFETIL. [Suspect]
     Active Substance: MYCOPHENOLATE MOFETIL
     Indication: RENAL TRANSPLANT
     Dosage: 0.75 G, EVERY 12 HOURS
     Route: 048
     Dates: start: 2019, end: 20190218
  4. PHENOBARBITAL SODIUM. [Interacting]
     Active Substance: PHENOBARBITAL SODIUM
     Dosage: 0.1 G, ONCE DAILY
     Route: 030
     Dates: start: 2019
  5. METHYLPREDNISOLONE SODIUM SUCCINATE. [Concomitant]
     Active Substance: METHYLPREDNISOLONE SODIUM SUCCINATE
     Dosage: 60 MG, IVGTT ONCE DAILY
     Route: 042
     Dates: start: 20190218
  6. SCHISANDRA SPHENANTHERA [Concomitant]
     Dosage: 0.5 G, TWICE DAILY
     Route: 048
     Dates: start: 20190329
  7. TACROLIMUS. [Interacting]
     Active Substance: TACROLIMUS
     Indication: RENAL TRANSPLANT
     Dosage: 0.5 MG, EVERY 12 HOURS
     Route: 048
     Dates: start: 20190329
  8. SCHISANDRA SPHENANTHERA [Concomitant]
     Route: 048
  9. METHYLPREDNISOLONE. [Concomitant]
     Active Substance: METHYLPREDNISOLONE
     Indication: RENAL TRANSPLANT
     Route: 048
     Dates: start: 2019, end: 2019
  10. METHYLPREDNISOLONE. [Concomitant]
     Active Substance: METHYLPREDNISOLONE
     Route: 048
     Dates: start: 20190329
  11. METHYLPREDNISOLONE SODIUM SUCCINATE. [Concomitant]
     Active Substance: METHYLPREDNISOLONE SODIUM SUCCINATE
     Indication: RENAL TRANSPLANT
     Dosage: 500 MG, IVGTT ONCE DAILY (GRADUALLY LOWER)
     Route: 042
     Dates: start: 2019, end: 2019
  12. TACROLIMUS. [Interacting]
     Active Substance: TACROLIMUS
     Route: 048
  13. MYCOPHENOLATE MOFETIL. [Suspect]
     Active Substance: MYCOPHENOLATE MOFETIL
     Dosage: 0.5 G, EVERY 12 HOURS
     Route: 048
     Dates: start: 20190329
  14. PHENOBARBITAL SODIUM. [Interacting]
     Active Substance: PHENOBARBITAL SODIUM
     Indication: EPILEPSY
     Dosage: 0.1 G, TOTAL DOSE
     Route: 030
     Dates: start: 20190331, end: 20190331
  15. SCHISANDRA SPHENANTHERA [Concomitant]
     Indication: RENAL TRANSPLANT
     Route: 048
     Dates: start: 2019, end: 2019

REACTIONS (5)
  - Pneumonia influenzal [Recovered/Resolved]
  - Immunosuppressant drug level decreased [Recovered/Resolved]
  - Pulmonary mycosis [Recovered/Resolved]
  - Drug interaction [Unknown]
  - Epilepsy [Unknown]

NARRATIVE: CASE EVENT DATE: 20190218
